FAERS Safety Report 4728134-2 (Version None)
Quarter: 2005Q3

REPORT INFORMATION
  Report Type: 
  Country: None (occurrence: None)
  Receive Date: 20050728
  Receipt Date: 20050728
  Transmission Date: 20060218
  Serious: Yes (Life-Threatening)
  Sender: FDA-Public Use
  Company Number: None

PATIENT
  Age: 42 Year
  Sex: Female
  Weight: 81.6475 kg

DRUGS (1)
  1. ABILIFY [Suspect]
     Indication: PANCREATITIS
     Dates: start: 20041201

REACTIONS (2)
  - DIABETES MELLITUS [None]
  - PANCREATITIS [None]
